FAERS Safety Report 25775980 (Version 1)
Quarter: 2025Q3

REPORT INFORMATION
  Report Type: Spontaneous
  Country: JP (occurrence: JP)
  Receive Date: 20250909
  Receipt Date: 20250909
  Transmission Date: 20251020
  Serious: Yes (Other)
  Sender: GLAXOSMITHKLINE
  Company Number: JP-GSKJP-JP2025JPN112611AA

PATIENT

DRUGS (2)
  1. DAPRODUSTAT [Suspect]
     Active Substance: DAPRODUSTAT
  2. DARBEPOETIN ALFA [Suspect]
     Active Substance: DARBEPOETIN ALFA

REACTIONS (4)
  - Pancytopenia [Unknown]
  - Thrombosis [Unknown]
  - Bone marrow disorder [Unknown]
  - Collagen disorder [Unknown]
